FAERS Safety Report 8843387 (Version 1)
Quarter: 2012Q4

REPORT INFORMATION
  Report Type: 
  Country: US (occurrence: US)
  Receive Date: 20121016
  Receipt Date: 20121016
  Transmission Date: 20130627
  Serious: No
  Sender: FDA-Public Use
  Company Number: US-VERTEX PHARMACEUTICAL INC.-2012-022157

PATIENT
  Age: 32 None
  Sex: Female
  Weight: 55 kg

DRUGS (7)
  1. INCIVEK [Suspect]
     Indication: HEPATITIS C
     Dosage: 750 mg, tid
     Route: 048
     Dates: start: 20120914
  2. RIBAVIRIN [Suspect]
     Indication: HEPATITIS C
     Dosage: 400 mg, bid
     Route: 048
     Dates: start: 20120914
  3. PEGINTRON                          /01543001/ [Suspect]
     Indication: HEPATITIS C
     Dosage: 180 ?g/kg, qw
     Route: 058
     Dates: start: 20120914
  4. HYDROXYZINE [Concomitant]
     Indication: PRURITUS
  5. HYDROXYZINE [Concomitant]
     Indication: SLEEP DISORDER
  6. CHILDREN^S IBUPROFEN                          /00109205/ [Concomitant]
     Indication: PAIN
     Dosage: UNK, prn
     Route: 048
  7. CHILDREN^S IBUPROFEN                          /00109205/ [Concomitant]
     Indication: PYREXIA

REACTIONS (5)
  - Incorrect dose administered [Recovered/Resolved]
  - Gastrooesophageal reflux disease [Not Recovered/Not Resolved]
  - Decreased appetite [Not Recovered/Not Resolved]
  - Rash pruritic [Recovered/Resolved]
  - Nausea [Not Recovered/Not Resolved]
